FAERS Safety Report 6275618-4 (Version None)
Quarter: 2009Q3

REPORT INFORMATION
  Report Type: 
  Country: None (occurrence: None)
  Receive Date: 20090721
  Receipt Date: 20090709
  Transmission Date: 20100115
  Serious: Yes (Other)
  Sender: FDA-Public Use
  Company Number: CA-PFIZER INC-2009202545

PATIENT
  Age: 53 Year

DRUGS (6)
  1. LIPITOR [Suspect]
     Indication: BLOOD CHOLESTEROL
     Dosage: 10 MG, DAILY AT BEDTIME
     Route: 048
     Dates: start: 20090309, end: 20090409
  2. LIPITOR [Suspect]
     Indication: DYSLIPIDAEMIA
  3. OMEPRAZOLE [Concomitant]
     Indication: DYSPEPSIA
     Dosage: 20 MG, 1X/DAY
     Dates: start: 20090220
  4. SALBUTAMOL [Concomitant]
     Indication: ASTHMA
     Dosage: UNK
  5. HYDROCHLOROTHIAZIDE [Concomitant]
     Indication: BLOOD PRESSURE
     Dosage: 25 MG, 1X/DAY
  6. FLOVENT [Concomitant]
     Indication: ASTHMA
     Dosage: 125 UNK, 2X/DAY

REACTIONS (2)
  - BLOOD CHOLESTEROL INCREASED [None]
  - HIGH DENSITY LIPOPROTEIN DECREASED [None]
